FAERS Safety Report 6286993-9 (Version None)
Quarter: 2009Q3

REPORT INFORMATION
  Report Type: 
  Country: None (occurrence: None)
  Receive Date: 20090728
  Receipt Date: 20090720
  Transmission Date: 20100115
  Serious: Yes (Other)
  Sender: FDA-Public Use
  Company Number: US-SANOFI-SYNTHELABO-A03200903201

PATIENT
  Age: 97 Year
  Sex: Male

DRUGS (1)
  1. UROXATRAL [Suspect]
     Indication: GROIN PAIN
     Dosage: UNK
     Route: 048
     Dates: start: 20090713, end: 20090713

REACTIONS (1)
  - SUICIDAL IDEATION [None]
